FAERS Safety Report 10048904 (Version 1)
Quarter: 2014Q1

REPORT INFORMATION
  Report Type: Spontaneous
  Country: CH (occurrence: CH)
  Receive Date: 20140331
  Receipt Date: 20140331
  Transmission Date: 20141002
  Serious: Yes (Death)
  Sender: FDA-Public Use
  Company Number: CH-ACTAVIS-2013-25077

PATIENT
  Age: 33 Year
  Sex: Female

DRUGS (5)
  1. CITALOPRAM [Suspect]
     Indication: DEPRESSION
     Dosage: 40 MG, UNK
     Route: 065
     Dates: start: 20130103, end: 20130105
  2. CITALOPRAM [Suspect]
     Dosage: 20 MG, UNK
     Route: 065
     Dates: start: 20120104, end: 20130102
  3. REMERON SOLTAB [Suspect]
     Indication: DEPRESSION
     Dosage: 15 MG, UNK
     Route: 065
     Dates: start: 20121214, end: 20130105
  4. VALIUM                             /00017001/ [Concomitant]
     Indication: PRODUCT USED FOR UNKNOWN INDICATION
     Dosage: 10 MG, UNK
     Route: 065
     Dates: start: 20121230, end: 20130105
  5. TARDYFERON [Concomitant]
     Indication: IRON DEFICIENCY
     Dosage: 80 MG, UNK
     Route: 065
     Dates: start: 20121203, end: 20130103

REACTIONS (1)
  - Completed suicide [Fatal]
